FAERS Safety Report 10572695 (Version 2)
Quarter: 2015Q1

REPORT INFORMATION
  Report Type: Spontaneous
  Country: US (occurrence: US)
  Receive Date: 20141110
  Receipt Date: 20150217
  Transmission Date: 20150720
  Serious: Yes (Death, Other)
  Sender: FDA-Public Use
  Company Number: US-BIOGENIDEC-2014BI112371

PATIENT
  Age: 70 Year
  Sex: Male

DRUGS (2)
  1. TYSABRI [Suspect]
     Active Substance: NATALIZUMAB
     Indication: MULTIPLE SCLEROSIS
     Route: 042
     Dates: start: 20071105, end: 20091228
  2. TYSABRI [Suspect]
     Active Substance: NATALIZUMAB
     Indication: MULTIPLE SCLEROSIS
     Route: 042
     Dates: start: 20120215

REACTIONS (8)
  - Renal failure [Unknown]
  - Decubitus ulcer [Unknown]
  - Oral candidiasis [Unknown]
  - Death [Fatal]
  - Abasia [Unknown]
  - Multiple sclerosis [Fatal]
  - Urinary tract infection [Unknown]
  - Aphasia [Unknown]

NARRATIVE: CASE EVENT DATE: 20141021
